FAERS Safety Report 4947702-6 (Version None)
Quarter: 2006Q1

REPORT INFORMATION
  Report Type: 
  Country: None (occurrence: None)
  Receive Date: 20060320
  Receipt Date: 20060315
  Transmission Date: 20060701
  Serious: Yes (Hospitalization)
  Sender: FDA-Public Use
  Company Number: SE-AVENTIS-200612515GDDC

PATIENT
  Age: 35 Year
  Sex: Female

DRUGS (1)
  1. DDAVP [Suspect]
     Indication: DIABETES INSIPIDUS
     Route: 045

REACTIONS (2)
  - HYPONATRAEMIA [None]
  - NEPHROLITHIASIS [None]
